FAERS Safety Report 9417367 (Version 1)
Quarter: 2013Q3

REPORT INFORMATION
  Report Type: Spontaneous
  Country: US (occurrence: US)
  Receive Date: 20130724
  Receipt Date: 20130724
  Transmission Date: 20140515
  Serious: No
  Sender: FDA-Public Use
  Company Number: US-BRISTOL-MYERS SQUIBB COMPANY-18849521

PATIENT
  Age: 65 Year
  Sex: Female
  Weight: 63.04 kg

DRUGS (15)
  1. ELIQUIS [Suspect]
     Indication: ATRIAL FIBRILLATION
     Dates: start: 20130420
  2. ELMIRON [Concomitant]
  3. METHENAMINE [Concomitant]
  4. FIORICET [Concomitant]
  5. BOTOX [Concomitant]
     Indication: MIGRAINE
  6. PREMARIN [Concomitant]
  7. VERAPAMIL [Concomitant]
  8. EFFEXOR [Concomitant]
  9. PROZAC [Concomitant]
  10. FISH OIL [Concomitant]
  11. NEXIUM [Concomitant]
  12. ZANTAC [Concomitant]
  13. RITALIN [Concomitant]
  14. PROVIGIL [Concomitant]
  15. ARTHROTEC [Concomitant]

REACTIONS (3)
  - Chest discomfort [Unknown]
  - Rash [Unknown]
  - Dizziness [Unknown]
